FAERS Safety Report 12545051 (Version 4)
Quarter: 2018Q1

REPORT INFORMATION
  Report Type: Report from Study
  Country: US (occurrence: US)
  Receive Date: 20160711
  Receipt Date: 20180129
  Transmission Date: 20180508
  Serious: Yes (Hospitalization)
  Sender: FDA-Public Use
  Company Number: US-JNJFOC-20160704826

PATIENT
  Age: 58 Year
  Sex: Male
  Weight: 174 kg

DRUGS (8)
  1. ASPIRIN. [Concomitant]
     Active Substance: ASPIRIN
     Indication: PHARYNGITIS
     Dates: start: 20160610
  2. AMOXICILLIN. [Concomitant]
     Active Substance: AMOXICILLIN
     Indication: PHARYNGITIS
     Dosage: 875 MCG
     Dates: start: 20150609, end: 20150615
  3. UBLITUXIMAB [Suspect]
     Active Substance: UBLITUXIMAB
     Indication: CHRONIC LYMPHOCYTIC LEUKAEMIA
     Dosage: 900 MG, Q MONTHLY
     Route: 042
     Dates: start: 20160321, end: 20160612
  4. MORPHINE SULFATE. [Concomitant]
     Active Substance: MORPHINE SULFATE
     Indication: PHARYNGITIS
     Dates: start: 20160613, end: 20160620
  5. NYSTATIN. [Concomitant]
     Active Substance: NYSTATIN
     Indication: ORAL CANDIDIASIS
     Dates: start: 20160613, end: 20160620
  6. IBUPROFEN. [Concomitant]
     Active Substance: IBUPROFEN
     Indication: PHARYNGITIS
     Dates: start: 20160608
  7. IMBRUVICA [Suspect]
     Active Substance: IBRUTINIB
     Indication: CHRONIC LYMPHOCYTIC LEUKAEMIA
     Route: 048
     Dates: start: 20160321, end: 20160612
  8. MUCINEX [Concomitant]
     Active Substance: GUAIFENESIN
     Dates: start: 20160610

REACTIONS (1)
  - Dysphagia [Recovered/Resolved with Sequelae]

NARRATIVE: CASE EVENT DATE: 20160614
